FAERS Safety Report 7431691-9 (Version None)
Quarter: 2011Q2

REPORT INFORMATION
  Report Type: 
  Country: None (occurrence: None)
  Receive Date: 20110422
  Receipt Date: 20110413
  Transmission Date: 20111010
  Serious: Yes (Hospitalization)
  Sender: FDA-Public Use
  Company Number: US-BIOGENIDEC-2011BI005285

PATIENT
  Age: 54 Year
  Sex: Male

DRUGS (9)
  1. RAMIPRIL [Concomitant]
  2. ASPIRIN [Concomitant]
  3. AMANTADINE HCL [Concomitant]
  4. HYDROCHLOROTHIAZIDE [Concomitant]
  5. CYANOCOBALAMIN [Concomitant]
  6. CITALOPRAM HYDROBROMIDE [Concomitant]
  7. SIMVASTATIN [Concomitant]
  8. TYSABRI [Suspect]
     Indication: MULTIPLE SCLEROSIS
     Route: 042
     Dates: start: 20071025
  9. MAGNESIUM [Concomitant]

REACTIONS (1)
  - SPONDYLITIC MYELOPATHY [None]
